FAERS Safety Report 14481983 (Version 1)
Quarter: 2018Q1

REPORT INFORMATION
  Report Type: Spontaneous
  Country: US (occurrence: US)
  Receive Date: 20180202
  Receipt Date: 20180202
  Transmission Date: 20180509
  Serious: Yes (Hospitalization, Disabling, Other)
  Sender: FDA-Public Use
  Company Number: None

PATIENT
  Age: 16 Year
  Sex: Female
  Weight: 58.5 kg

DRUGS (7)
  1. IRON WITH VITAMIN C [Concomitant]
  2. ZOLOFT [Concomitant]
     Active Substance: SERTRALINE HYDROCHLORIDE
  3. MIGRELIEF [Concomitant]
  4. VITAMIN B COMPLEX [Concomitant]
     Active Substance: CYANOCOBALAMIN\DEXPANTHENOL\NIACINAMIDE\PYRIDOXINE HYDROCHLORIDE\RIBOFLAVIN 5^-PHOSPHATE SODIUM\THIAMINE HYDROCHLORIDE\VITAMIN B COMPLEX
  5. MONTELUKAST [Suspect]
     Active Substance: MONTELUKAST SODIUM
     Indication: SEASONAL ALLERGY
     Route: 048
  6. ALLEGRA [Concomitant]
     Active Substance: FEXOFENADINE HYDROCHLORIDE
  7. MULTI VITAMIN [Concomitant]
     Active Substance: VITAMINS

REACTIONS (8)
  - Panic attack [None]
  - Depression [None]
  - Fear [None]
  - Withdrawal syndrome [None]
  - Migraine [None]
  - Ventricular extrasystoles [None]
  - Reaction to azo-dyes [None]
  - Nightmare [None]

NARRATIVE: CASE EVENT DATE: 20170101
